FAERS Safety Report 23959644 (Version 1)
Quarter: 2024Q2

REPORT INFORMATION
  Report Type: Spontaneous
  Country: US (occurrence: US)
  Receive Date: 20240611
  Receipt Date: 20240611
  Transmission Date: 20240716
  Serious: No
  Sender: FDA-Public Use
  Company Number: US-ABBVIE-5790228

PATIENT
  Sex: Male

DRUGS (1)
  1. HUMIRA [Suspect]
     Active Substance: ADALIMUMAB
     Indication: Product used for unknown indication
     Route: 058

REACTIONS (11)
  - Drug ineffective [Unknown]
  - Arthropathy [Unknown]
  - Arthralgia [Unknown]
  - Brain fog [Unknown]
  - Inflammation [Unknown]
  - Dactylitis [Unknown]
  - Pain [Unknown]
  - Fatigue [Recovered/Resolved]
  - Skin disorder [Unknown]
  - Sleep disorder [Unknown]
  - Arthralgia [Unknown]
